FAERS Safety Report 23169661 (Version 1)
Quarter: 2023Q4

REPORT INFORMATION
  Report Type: Spontaneous
  Country: CN (occurrence: CN)
  Receive Date: 20231110
  Receipt Date: 20231110
  Transmission Date: 20240110
  Serious: Yes (Other)
  Sender: FDA-Public Use
  Company Number: CN-SA-SAC20231108001756

PATIENT
  Age: 57 Year
  Sex: Female
  Weight: 55.2 kg

DRUGS (6)
  1. INSULIN LISPRO [Suspect]
     Active Substance: INSULIN LISPRO
     Indication: Type 2 diabetes mellitus
     Dosage: 5 IU,BEFORE THREE MEAL
     Route: 058
     Dates: start: 20231020, end: 20231027
  2. INSULIN LISPRO [Suspect]
     Active Substance: INSULIN LISPRO
     Indication: Hyperlipidaemia
  3. INSULIN LISPRO [Suspect]
     Active Substance: INSULIN LISPRO
     Indication: Hypercholesterolaemia
  4. TOUJEO [Suspect]
     Active Substance: INSULIN GLARGINE
     Indication: Type 2 diabetes mellitus
     Dosage: 11 IU, QD
     Route: 058
     Dates: start: 20231025, end: 20231027
  5. TOUJEO [Suspect]
     Active Substance: INSULIN GLARGINE
     Indication: Hypercholesterolaemia
  6. TOUJEO [Suspect]
     Active Substance: INSULIN GLARGINE
     Indication: Hyperlipidaemia

REACTIONS (2)
  - Oedema [Recovering/Resolving]
  - Product use in unapproved indication [Unknown]

NARRATIVE: CASE EVENT DATE: 20231020
